FAERS Safety Report 5944592-X (Version None)
Quarter: 2008Q4

REPORT INFORMATION
  Report Type: 
  Country: None (occurrence: None)
  Receive Date: 20081105
  Receipt Date: 20081027
  Transmission Date: 20090506
  Serious: No
  Sender: FDA-Public Use
  Company Number: 2008-175375-NL

PATIENT
  Sex: Male

DRUGS (11)
  1. MIRTAZAPINE [Suspect]
     Dosage: DF/2 DF QD/15 MG ONCE/30 MG/15 MG/15 MG ALT/15 MG/ 30 MG ORAL
     Route: 048
     Dates: start: 20070101, end: 20070101
  2. MIRTAZAPINE [Suspect]
     Dosage: DF/2 DF QD/15 MG ONCE/30 MG/15 MG/15 MG ALT/15 MG/ 30 MG ORAL
     Route: 048
     Dates: start: 20070101, end: 20070101
  3. MIRTAZAPINE [Suspect]
     Dosage: DF/2 DF QD/15 MG ONCE/30 MG/15 MG/15 MG ALT/15 MG/ 30 MG ORAL
     Route: 048
     Dates: start: 20070101, end: 20070101
  4. MIRTAZAPINE [Suspect]
     Dosage: DF/2 DF QD/15 MG ONCE/30 MG/15 MG/15 MG ALT/15 MG/ 30 MG ORAL
     Route: 048
     Dates: start: 20070209, end: 20070201
  5. MIRTAZAPINE [Suspect]
     Dosage: DF/2 DF QD/15 MG ONCE/30 MG/15 MG/15 MG ALT/15 MG/ 30 MG ORAL
     Route: 048
     Dates: start: 20070201, end: 20070207
  6. MIRTAZAPINE [Suspect]
     Dosage: DF/2 DF QD/15 MG ONCE/30 MG/15 MG/15 MG ALT/15 MG/ 30 MG ORAL
     Route: 048
     Dates: start: 20070529, end: 20070608
  7. MIRTAZAPINE [Suspect]
     Dosage: DF/2 DF QD/15 MG ONCE/30 MG/15 MG/15 MG ALT/15 MG/ 30 MG ORAL
     Route: 048
     Dates: start: 20070906, end: 20070913
  8. MIRTAZAPINE [Suspect]
     Dosage: DF/2 DF QD/15 MG ONCE/30 MG/15 MG/15 MG ALT/15 MG/ 30 MG ORAL
     Route: 048
     Dates: start: 20070914
  9. ALCOHOL [Suspect]
     Dosage: DF
     Dates: start: 20080201
  10. DOSULEPIN [Concomitant]
  11. ESCITALOPRAM [Concomitant]

REACTIONS (14)
  - ABNORMAL DREAMS [None]
  - AGGRESSION [None]
  - ALCOHOL INTERACTION [None]
  - ALCOHOL POISONING [None]
  - AMNESIA [None]
  - DRUG EFFECT DECREASED [None]
  - HOMICIDE [None]
  - INAPPROPRIATE SCHEDULE OF DRUG ADMINISTRATION [None]
  - INSOMNIA [None]
  - JOINT SWELLING [None]
  - NIGHTMARE [None]
  - OEDEMA PERIPHERAL [None]
  - SOMNAMBULISM [None]
  - TREATMENT NONCOMPLIANCE [None]
